FAERS Safety Report 21092626 (Version 6)
Quarter: 2023Q1

REPORT INFORMATION
  Report Type: Report from Study
  Country: US (occurrence: US)
  Receive Date: 20220718
  Receipt Date: 20230330
  Transmission Date: 20230418
  Serious: Yes (Other)
  Sender: FDA-Public Use
  Company Number: US-TAKEDA-2022TUS047698

PATIENT
  Age: 40 Year
  Sex: Male

DRUGS (1)
  1. RECOMBINATE [Suspect]
     Active Substance: ANTIHEMOPHILIC FACTOR, HUMAN RECOMBINANT
     Indication: Product used for unknown indication
     Dosage: 2000 INTERNATIONAL UNIT, 3/WEEK
     Route: 042

REACTIONS (5)
  - Haemarthrosis [Recovering/Resolving]
  - Haemorrhage [Unknown]
  - Nephrolithiasis [Unknown]
  - Conjunctivitis [Unknown]
  - Product dose omission issue [Unknown]

NARRATIVE: CASE EVENT DATE: 20220713
